FAERS Safety Report 6987505-4 (Version None)
Quarter: 2010Q3

REPORT INFORMATION
  Report Type: 
  Country: None (occurrence: None)
  Receive Date: 20100916
  Receipt Date: 20100907
  Transmission Date: 20110219
  Serious: No
  Sender: FDA-Public Use
  Company Number: US-PFIZER INC-2010113675

PATIENT
  Sex: Male
  Weight: 176.9 kg

DRUGS (1)
  1. VIAGRA [Suspect]
     Indication: ERECTILE DYSFUNCTION
     Dosage: 50 MG, UNK
     Route: 048
     Dates: start: 20100905

REACTIONS (3)
  - DRUG EFFECT DECREASED [None]
  - ERECTILE DYSFUNCTION [None]
  - SEXUAL DYSFUNCTION [None]
